FAERS Safety Report 6027900-3 (Version None)
Quarter: 2008Q4

REPORT INFORMATION
  Report Type: 
  Country: None (occurrence: None)
  Receive Date: 20081230
  Receipt Date: 20081211
  Transmission Date: 20090506
  Serious: Yes (Hospitalization, Other)
  Sender: FDA-Public Use
  Company Number: GXKR2008DE11780

PATIENT
  Age: 84 Year
  Sex: Female

DRUGS (23)
  1. EMBOLEX [Suspect]
     Indication: THROMBOSIS PROPHYLAXIS
     Dosage: 0.5 MG, QD, SUBCUTANEOUS
     Route: 058
     Dates: start: 20050928, end: 20051010
  2. CETIRZINE (NGX) (CETIRIZINE) UNKNOWN [Suspect]
     Indication: PRURITUS
     Dosage: 10 MG, ONCE/SINGLE, ORAL
     Route: 048
     Dates: start: 20051010
  3. CETIRZINE (NGX) (CETIRIZINE) UNKNOWN [Suspect]
     Indication: PRURITUS
     Dosage: 10 MG, ONCE/SINGLE, ORAL
     Route: 048
     Dates: start: 20051020
  4. VOLTAREN [Suspect]
     Indication: PAIN
     Dosage: 1 DF, BID, ORAL
     Route: 048
     Dates: start: 20050826, end: 20050927
  5. PHENHYDAN (PHENYTOIN) 100 MG [Suspect]
     Indication: CONVULSION
     Dosage: 1 DF, TID, ORAL
     Route: 048
     Dates: start: 20050918
  6. COTRIM FORET ^HEUMANN^ (SULFAMETHOXAZOLE, TRIMETHOPRIM) [Suspect]
     Dosage: 1 DF, QD, ORAL
     Route: 048
     Dates: start: 20051016, end: 20051019
  7. TEMAZEPAM [Suspect]
     Indication: SLEEP DISORDER
     Dosage: 1 DF, BID, ORAL
     Route: 048
     Dates: start: 20050928
  8. PASPERTIN / GFR/ (METOCLOPRAMIDE HYDROCHLORIDE) DROPS [Suspect]
     Indication: NAUSEA
     Dosage: 15 DF, TID, ORAL
     Route: 048
     Dates: start: 20051014
  9. NOVALGIN / SCH/ (METAMIZOLE SODIUM MONOHYDRATE) DROPS [Suspect]
     Indication: PAIN
     Dosage: 30 DF, QID, ORAL
     Route: 048
     Dates: start: 20050826, end: 20050927
  10. FOSAMAX [Concomitant]
  11. IDEOS (CALCIUM CARBONATE, COLECALCIFEROL) CHEWABLE TABLET [Suspect]
  12. LERCANIDIPINE [Concomitant]
  13. METFORMIN HCL [Concomitant]
  14. DELIX PLUS (HYDROCHLOROTHIAZIDE, RAMIPRIL) [Concomitant]
  15. BIFITERAL ^SOLVAY ARZNEIMITTEL^ (LACTULOSE) SYRUP [Concomitant]
  16. ACETYLALICYLIC ACID [Concomitant]
  17. PANTOPRAZOLE SODIUM [Concomitant]
  18. CLONAZEPAM [Concomitant]
  19. HALDOL (HALOPERIDOL DECANOATE) DROPS [Concomitant]
  20. MOVICOL (MACROGOL, POTASSIUM CHLORIDE, SODIUM BICARBONATE, SODIUM CHLO [Concomitant]
  21. NEXIUM [Concomitant]
  22. FENISTIL (DIMETINDENE MALEATE) GEL [Concomitant]
  23. DACORTIN (PREDNISONE) [Concomitant]

REACTIONS (9)
  - CONSTIPATION [None]
  - CONVULSION [None]
  - NAUSEA [None]
  - ORAL CANDIDIASIS [None]
  - RESTLESSNESS [None]
  - SKIN DISORDER [None]
  - SLEEP DISORDER [None]
  - STEVENS-JOHNSON SYNDROME [None]
  - TRANSIENT ISCHAEMIC ATTACK [None]
